FAERS Safety Report 4701933-9 (Version None)
Quarter: 2005Q2

REPORT INFORMATION
  Report Type: 
  Country: None (occurrence: None)
  Receive Date: 20050627
  Receipt Date: 20050613
  Transmission Date: 20051028
  Serious: Yes (Hospitalization)
  Sender: FDA-Public Use
  Company Number: FABR-11138

PATIENT
  Age: 50 Year
  Sex: Male
  Weight: 105 kg

DRUGS (4)
  1. FABRAZYME [Suspect]
     Indication: FABRY'S DISEASE
     Dosage: 105 MG Q2WKS IV
     Route: 042
     Dates: start: 20030827
  2. DIOVAN [Concomitant]
  3. BUMEX [Concomitant]
  4. COUMADIN [Concomitant]

REACTIONS (2)
  - LOCALISED INFECTION [None]
  - MYOCARDIAL INFARCTION [None]
